FAERS Safety Report 9168521 (Version 1)
Quarter: 2013Q1

REPORT INFORMATION
  Report Type: Spontaneous
  Country: US (occurrence: None)
  Receive Date: 20130314
  Receipt Date: 20130314
  Transmission Date: 20140127
  Serious: Yes (Hospitalization)
  Sender: FDA-Public Use
  Company Number: None

PATIENT
  Age: 53 Year
  Sex: Female
  Weight: 49.9 kg

DRUGS (1)
  1. TAMIFLU 75MG [Suspect]
     Indication: INFLUENZA
     Route: 048
     Dates: start: 20130116, end: 20130118

REACTIONS (5)
  - Eyelid oedema [None]
  - Ocular hyperaemia [None]
  - Vision blurred [None]
  - Rash [None]
  - Rash [None]
